FAERS Safety Report 14928788 (Version 1)
Quarter: 2018Q2

REPORT INFORMATION
  Report Type: Spontaneous
  Country: US (occurrence: US)
  Receive Date: 20180523
  Receipt Date: 20180523
  Transmission Date: 20180711
  Serious: Yes (Hospitalization, Other)
  Sender: FDA-Public Use
  Company Number: US-GLAXOSMITHKLINE-US2018GSK091050

PATIENT
  Age: 41 Year
  Sex: Female

DRUGS (3)
  1. LAMICTAL [Suspect]
     Active Substance: LAMOTRIGINE
  2. ABILIFY [Suspect]
     Active Substance: ARIPIPRAZOLE
  3. METHIMAZOLE. [Suspect]
     Active Substance: METHIMAZOLE

REACTIONS (8)
  - Confusional state [Unknown]
  - Treatment noncompliance [Unknown]
  - Acute psychosis [Unknown]
  - Anxiety [Unknown]
  - Affect lability [Unknown]
  - Abnormal behaviour [Unknown]
  - Delusion [Unknown]
  - Paranoia [Unknown]
